FAERS Safety Report 8196420-2 (Version None)
Quarter: 2012Q1

REPORT INFORMATION
  Report Type: 
  Country: None (occurrence: None)
  Receive Date: 20120309
  Receipt Date: 20120305
  Transmission Date: 20120608
  Serious: Yes (Hospitalization)
  Sender: FDA-Public Use
  Company Number: US-PFIZER INC-2012058914

PATIENT
  Sex: Male
  Weight: 47.166 kg

DRUGS (2)
  1. REVATIO [Suspect]
     Indication: PULMONARY HYPERTENSION
     Dosage: 40 MG, 3X/DAY
     Route: 048
     Dates: start: 20110101
  2. TRACLEER [Concomitant]
     Dosage: UNK

REACTIONS (2)
  - ANEURYSM [None]
  - INCORRECT DOSE ADMINISTERED [None]
